FAERS Safety Report 10527597 (Version 2)
Quarter: 2014Q4

REPORT INFORMATION
  Report Type: Spontaneous
  Country: JP (occurrence: None)
  Receive Date: 20141016
  Receipt Date: 20141023
  Transmission Date: 20150528
  Serious: Yes (Life-Threatening, Hospitalization, Other)
  Sender: FDA-Public Use
  Company Number: ADR-2014-01900

PATIENT
  Age: 47 Year
  Sex: Male
  Weight: 37 kg

DRUGS (1)
  1. GABALON [Suspect]
     Active Substance: BACLOFEN
     Indication: SPINAL CORD DISORDER
     Dosage: 190 MCG/DAY
     Dates: start: 20130902

REACTIONS (9)
  - Hypotonia [None]
  - Loss of consciousness [None]
  - Hyponatraemia [None]
  - Hydrocephalus [None]
  - Respiratory failure [None]
  - Fall [None]
  - Head injury [None]
  - Subdural haemorrhage [None]
  - Nausea [None]
